FAERS Safety Report 11294756 (Version 1)
Quarter: 2015Q3

REPORT INFORMATION
  Report Type: Spontaneous
  Country: GB (occurrence: GB)
  Receive Date: 20150723
  Receipt Date: 20150723
  Transmission Date: 20151125
  Serious: Yes (Other)
  Sender: FDA-Public Use
  Company Number: GB-AMGEN-GBRSP2015073255

PATIENT
  Age: 42 Year
  Sex: Female

DRUGS (1)
  1. ENBREL [Suspect]
     Active Substance: ETANERCEPT
     Indication: PRODUCT USED FOR UNKNOWN INDICATION
     Dosage: 50 MG, UNK
     Route: 065

REACTIONS (8)
  - Eye pruritus [Unknown]
  - Joint swelling [Unknown]
  - Neoplasm [Unknown]
  - Dry eye [Unknown]
  - Abasia [Unknown]
  - Condition aggravated [Unknown]
  - Eye inflammation [Unknown]
  - Drug ineffective [Unknown]
